FAERS Safety Report 8912134 (Version 1)
Quarter: 2012Q4

REPORT INFORMATION
  Report Type: 
  Country: DE (occurrence: DE)
  Receive Date: 20121116
  Receipt Date: 20121116
  Transmission Date: 20130627
  Serious: Yes (Hospitalization)
  Sender: FDA-Public Use
  Company Number: DE-ABBOTT-12P-062-1007963-00

PATIENT
  Age: 37 Year
  Sex: Female

DRUGS (4)
  1. ERGENYL [Suspect]
     Indication: PRODUCT USED FOR UNKNOWN INDICATION
     Dosage: 1050 milligram(s); Daily
     Route: 048
     Dates: start: 201205, end: 20120627
  2. ERGENYL [Suspect]
     Dosage: increased to 1200 mg
     Dates: start: 20120628
  3. ERGENYL [Suspect]
     Dosage: tapered 1200mg to zero
     Dates: start: 20120706, end: 20120709
  4. MIRTAZAPINE [Suspect]
     Indication: PRODUCT USED FOR UNKNOWN INDICATION
     Dosage: 30 mg daily
     Route: 048
     Dates: start: 20120405

REACTIONS (3)
  - Generalised oedema [Recovering/Resolving]
  - Musculoskeletal discomfort [Recovering/Resolving]
  - Erythema [Recovering/Resolving]
